FAERS Safety Report 14653574 (Version 1)
Quarter: 2018Q1

REPORT INFORMATION
  Report Type: Spontaneous
  Country: US (occurrence: US)
  Receive Date: 20180319
  Receipt Date: 20180319
  Transmission Date: 20180509
  Serious: Yes (Other)
  Sender: FDA-Public Use
  Company Number: US-CIPLA LTD.-2014US00145

PATIENT

DRUGS (3)
  1. HUMAN ALBUMIN/PACLITAXEL [Suspect]
     Active Substance: PACLITAXEL
     Indication: TRANSITIONAL CELL CARCINOMA
     Dosage: 200 MG/M2 ON DAY 1
  2. CARBOPLATIN. [Suspect]
     Active Substance: CARBOPLATIN
     Indication: TRANSITIONAL CELL CARCINOMA
     Dosage: AREA UNDER THE CURVE EQUALS TO 5 ON DAY 1
  3. GEMCITABINE [Suspect]
     Active Substance: GEMCITABINE\GEMCITABINE HYDROCHLORIDE
     Indication: TRANSITIONAL CELL CARCINOMA
     Dosage: 800 MG/M2 ON DAYS 1 AND 8 IN 21-DAY CYCLES

REACTIONS (1)
  - Febrile neutropenia [Unknown]
